FAERS Safety Report 20914150 (Version 5)
Quarter: 2022Q3

REPORT INFORMATION
  Report Type: Spontaneous
  Country: DE (occurrence: DE)
  Receive Date: 20220604
  Receipt Date: 20220827
  Transmission Date: 20221027
  Serious: Yes (Death, Life-Threatening)
  Sender: FDA-Public Use
  Company Number: DE-NOVARTISPH-NVSC2022DE128275

PATIENT
  Sex: Male
  Weight: 106 kg

DRUGS (32)
  1. CARBOPLATIN [Suspect]
     Active Substance: CARBOPLATIN
     Indication: Non-small cell lung cancer
     Dosage: 336.3 MG (1ST LINE)
     Route: 065
     Dates: start: 20220405, end: 20220405
  2. CARBOPLATIN [Suspect]
     Active Substance: CARBOPLATIN
     Dosage: 376.2 MG (1ST LINE)
     Route: 065
     Dates: start: 20220426, end: 20220426
  3. PACLITAXEL [Suspect]
     Active Substance: PACLITAXEL
     Indication: Non-small cell lung cancer
     Dosage: 392 MG, 1ST LINE
     Route: 065
     Dates: start: 20220405
  4. PACLITAXEL [Suspect]
     Active Substance: PACLITAXEL
     Dosage: 374.5 MG, 1ST LINE
     Route: 065
     Dates: start: 20220426, end: 20220426
  5. PEMBROLIZUMAB [Suspect]
     Active Substance: PEMBROLIZUMAB
     Indication: Non-small cell lung cancer
     Dosage: 200 MG, 1ST LINE
     Route: 065
     Dates: start: 20220405, end: 20220426
  6. CHOLECALCIFEROL [Concomitant]
     Active Substance: CHOLECALCIFEROL
     Indication: Product used for unknown indication
     Dosage: 1000 INTERNATIONAL UNIT (IE), QD, DRY CONCENTRATE
     Route: 048
     Dates: start: 20220223
  7. CARBOPLATIN [Concomitant]
     Active Substance: CARBOPLATIN
     Indication: Product used for unknown indication
     Dosage: 376 MILLIGRAM, QD
     Route: 042
     Dates: start: 20220426, end: 20220427
  8. SODIUM CHLORIDE [Concomitant]
     Active Substance: SODIUM CHLORIDE
     Indication: Product used for unknown indication
     Dosage: 100 MILLILITER, QD
     Route: 042
     Dates: start: 20220426, end: 20220427
  9. PANTOPRAZOLE SODIUM [Concomitant]
     Active Substance: PANTOPRAZOLE SODIUM
     Indication: Product used for unknown indication
     Dosage: 20 MILLIGRAM, QD, GASTRORESISTANT TABLETS
     Route: 048
     Dates: start: 20220304
  10. METOPROLOL SUCCINATE [Concomitant]
     Active Substance: METOPROLOL SUCCINATE
     Indication: Product used for unknown indication
     Dosage: 47 MILLIGRAM, BID, RETARD TABLETS
     Route: 048
     Dates: start: 20220412
  11. DEXAMETHASONE [Concomitant]
     Active Substance: DEXAMETHASONE
     Indication: Product used for unknown indication
     Dosage: 20 MILLIGRAM, QD
     Route: 042
     Dates: start: 20220426, end: 20220427
  12. DEXAMETHASONE [Concomitant]
     Active Substance: DEXAMETHASONE
     Dosage: 4MG, ORALLY, TWICE DAILY
     Route: 048
     Dates: start: 20220420
  13. PACLITAXEL [Concomitant]
     Active Substance: PACLITAXEL
     Indication: Product used for unknown indication
     Dosage: 374 MILLIGRAM, QD, STRENGTH 6MG/ML, CONCENTRATE FOR PREPARATION OF INFUSION
     Route: 042
     Dates: start: 20220426, end: 20220427
  14. PIPERACILLIN AND TAZOBACTAM [Concomitant]
     Active Substance: PIPERACILLIN SODIUM\TAZOBACTAM SODIUM
     Indication: Product used for unknown indication
     Dosage: 4 GRAM, QD, STRENGHT 4 G/0,5 G POWDER FOR PREPARATION OF INFUSION
     Route: 042
     Dates: start: 20220412, end: 20220425
  15. HYDROXYCHLOROQUINE [Concomitant]
     Active Substance: HYDROXYCHLOROQUINE
     Indication: Product used for unknown indication
     Dosage: 200 MILLIGRAM, QD
     Route: 048
     Dates: start: 20220406
  16. GRANISETRON [Concomitant]
     Active Substance: GRANISETRON
     Indication: Product used for unknown indication
     Dosage: 1 MILLIGRAM, QD
     Route: 042
     Dates: start: 20220426, end: 20220427
  17. XIPAMID RATIOPHARM [Concomitant]
     Indication: Product used for unknown indication
     Dosage: 10 MILLIGRAM, BID
     Route: 048
     Dates: start: 20220416
  18. DALTEPARIN SODIUM [Concomitant]
     Active Substance: DALTEPARIN SODIUM
     Indication: Product used for unknown indication
     Dosage: 200 MICROL, QD, FORTE 5000 I.E.
     Route: 058
     Dates: start: 20220323
  19. H2 BLOCKER [Concomitant]
     Indication: Product used for unknown indication
     Dosage: 200 MG
     Route: 042
     Dates: start: 20220426, end: 20220427
  20. ASPIRIN [Concomitant]
     Active Substance: ASPIRIN
     Indication: Product used for unknown indication
     Dosage: 100 MILLIGRAM, QD
     Route: 048
     Dates: start: 20220223
  21. MELPERONE HYDROCHLORIDE [Concomitant]
     Active Substance: MELPERONE HYDROCHLORIDE
     Indication: Product used for unknown indication
     Dosage: 50MG ORALLY, THREE TIMES DAILY
     Route: 048
     Dates: start: 20220319
  22. METAMIZOLE [Concomitant]
     Active Substance: METAMIZOLE
     Indication: Product used for unknown indication
     Dosage: 1000 MG ORALLY, DAILY
     Route: 048
     Dates: start: 20220426, end: 20220426
  23. ZOPICLONE [Concomitant]
     Active Substance: ZOPICLONE
     Indication: Product used for unknown indication
     Dosage: 5 MG ORALLY DAILY
     Route: 048
     Dates: start: 20220408
  24. PREDNISOLONE [Concomitant]
     Active Substance: PREDNISOLONE
     Indication: Product used for unknown indication
     Dosage: 40MG ORAL DAILY
     Route: 048
     Dates: start: 20220616
  25. CALCIUM D3 STADA [Concomitant]
     Indication: Product used for unknown indication
     Dosage: 600 MILLIGRAM, BID
     Route: 048
     Dates: start: 20220318
  26. AXIGRAN [Concomitant]
     Indication: Product used for unknown indication
     Dosage: 2 MG ORALLY, DAILY
     Route: 048
     Dates: start: 20220427, end: 20220429
  27. TORSEMIDE [Concomitant]
     Active Substance: TORSEMIDE
     Indication: Product used for unknown indication
     Dosage: 10MG ORALLY, DAILY
     Route: 048
     Dates: start: 20220415
  28. ACETAMINOPHEN [Concomitant]
     Active Substance: ACETAMINOPHEN
     Indication: Product used for unknown indication
     Dosage: 1000 MG ORALLY, DAILY
     Route: 048
     Dates: start: 20220426, end: 20220427
  29. ISOTONIC SODIUM CHLORIDE SOLUTION [Concomitant]
     Active Substance: SODIUM CHLORIDE
     Indication: Product used for unknown indication
     Dosage: 10 ML INHALATIVE
     Dates: start: 20220408, end: 20220427
  30. APREPITANT [Concomitant]
     Active Substance: APREPITANT
     Indication: Product used for unknown indication
     Dosage: 80 MG ORALLY DAILY
     Route: 048
     Dates: start: 20220427, end: 20220428
  31. APREPITANT [Concomitant]
     Active Substance: APREPITANT
     Dosage: 125MG ORALLY, DAILY
     Route: 048
     Dates: start: 20220426, end: 20220426
  32. TAVOR (LORAZEPAM) [Concomitant]
     Active Substance: LORAZEPAM
     Indication: Product used for unknown indication
     Dosage: 1 MG, QD
     Route: 048
     Dates: start: 20220426, end: 20220426

REACTIONS (1)
  - Immune-mediated adverse reaction [Fatal]

NARRATIVE: CASE EVENT DATE: 20220518
